FAERS Safety Report 6856659-2 (Version None)
Quarter: 2010Q3

REPORT INFORMATION
  Report Type: 
  Country: None (occurrence: None)
  Receive Date: 20100719
  Receipt Date: 20100712
  Transmission Date: 20110219
  Serious: Yes (Other)
  Sender: FDA-Public Use
  Company Number: US-GENENTECH-304167

PATIENT
  Sex: Female

DRUGS (1)
  1. RITUXAN [Suspect]
     Indication: CRYOGLOBULINAEMIA
     Dosage: UNK MG/KG, 1/WEEK
     Route: 042
     Dates: start: 20091201, end: 20100101

REACTIONS (1)
  - CRYOGLOBULINAEMIA [None]
